FAERS Safety Report 25406942 (Version 3)
Quarter: 2025Q3

REPORT INFORMATION
  Report Type: Report from Study
  Country: US (occurrence: US)
  Receive Date: 20250606
  Receipt Date: 20250711
  Transmission Date: 20251021
  Serious: Yes (Death, Other)
  Sender: ACADIA PHARMACEUTICALS
  Company Number: US-ACADIA PHARMACEUTICALS INC.-ACA-2025-PIM-006648

PATIENT
  Age: 78 Year
  Sex: Male

DRUGS (9)
  1. NUPLAZID [Suspect]
     Active Substance: PIMAVANSERIN TARTRATE
     Indication: Parkinson^s disease
     Dosage: 34 MILLIGRAM, QD
     Route: 048
     Dates: start: 20231221, end: 20250523
  2. GABAPENTIN [Concomitant]
     Active Substance: GABAPENTIN
  3. LISINOPRIL [Concomitant]
     Active Substance: LISINOPRIL
  4. METAMUCIL ORANGE [Concomitant]
  5. NEUPRO [Concomitant]
     Active Substance: ROTIGOTINE
     Dosage: 1 MILLIGRAM, QD
  6. PRAVASTATIN [Concomitant]
     Active Substance: PRAVASTATIN
  7. RYTARY [Concomitant]
     Active Substance: CARBIDOPA\LEVODOPA
  8. TAMSULOSIN [Concomitant]
     Active Substance: TAMSULOSIN
  9. CITALOPRAM [Concomitant]
     Active Substance: CITALOPRAM

REACTIONS (2)
  - Pneumonia [Fatal]
  - Haemoptysis [Fatal]

NARRATIVE: CASE EVENT DATE: 20250523
